FAERS Safety Report 20439517 (Version 1)
Quarter: 2022Q1

REPORT INFORMATION
  Report Type: Report from Study
  Country: US (occurrence: US)
  Receive Date: 20220207
  Receipt Date: 20220207
  Transmission Date: 20220423
  Serious: Yes (Hospitalization, Other)
  Sender: FDA-Public Use
  Company Number: US-ALLERGAN-2204594US

PATIENT
  Sex: Female

DRUGS (1)
  1. IRON DEXTRAN [Suspect]
     Active Substance: IRON DEXTRAN
     Indication: Anaemia
     Dosage: TEST DOSE

REACTIONS (4)
  - Blood pressure abnormal [Unknown]
  - Heart rate increased [Unknown]
  - Foaming at mouth [Unknown]
  - Respiratory distress [Unknown]
